FAERS Safety Report 6074791-0 (Version None)
Quarter: 2009Q1

REPORT INFORMATION
  Report Type: 
  Country: None (occurrence: None)
  Receive Date: 20090209
  Receipt Date: 20090130
  Transmission Date: 20090719
  Serious: Yes (Hospitalization)
  Sender: FDA-Public Use
  Company Number: 1000003775

PATIENT
  Age: 81 Year
  Sex: Male

DRUGS (7)
  1. NAMENDA [Suspect]
     Indication: DEMENTIA ALZHEIMER'S TYPE
     Dosage: 20 MG (10 MG, 2 KIN 1 D), ORAL, 10 MG (5 MG, 2 IN 1 D), ORAL
     Route: 048
     Dates: start: 20040101, end: 20090130
  2. NAMENDA [Suspect]
     Indication: DEMENTIA ALZHEIMER'S TYPE
     Dosage: 20 MG (10 MG, 2 KIN 1 D), ORAL, 10 MG (5 MG, 2 IN 1 D), ORAL
     Route: 048
     Dates: start: 20090131
  3. CIPRO [Suspect]
     Indication: CYSTITIS
     Dosage: 1000 (500 MG, 2 IN 1 D), ORAL
     Route: 048
     Dates: start: 20060101
  4. ATIVAN [Concomitant]
  5. LEVOTHYROXINE SODIUM [Concomitant]
  6. VICODIN [Concomitant]
  7. ZYRTEC [Concomitant]

REACTIONS (6)
  - ABASIA [None]
  - APHASIA [None]
  - CONVULSION [None]
  - CYSTITIS [None]
  - LOWER LIMB FRACTURE [None]
  - REFUSAL OF TREATMENT BY RELATIVE [None]
